FAERS Safety Report 7924295-2 (Version None)
Quarter: 2011Q4

REPORT INFORMATION
  Report Type: 
  Country: None (occurrence: None)
  Receive Date: 20111117
  Receipt Date: 20110321
  Transmission Date: 20120403
  Serious: No
  Sender: FDA-Public Use
  Company Number: US-AMGEN-USASP2011015325

PATIENT
  Age: 24 Year

DRUGS (7)
  1. VITAMIN B COMPLEX CAP [Concomitant]
  2. METHOTREXATE [Concomitant]
     Dosage: 2.5 MG, UNK
  3. ENBREL [Suspect]
     Indication: PRODUCT USED FOR UNKNOWN INDICATION
     Dosage: 50 MG, QWK
  4. AMPHETAMINE AND DEXTROAMPHETAMINE SALTS [Concomitant]
     Dosage: 10 MG, UNK
  5. CYMBALTA [Concomitant]
     Dosage: 20 MG, UNK
  6. LYRICA [Concomitant]
     Dosage: 25 MG, UNK
  7. FOLIC ACID [Concomitant]
     Dosage: 1 MG, UNK

REACTIONS (4)
  - INJECTION SITE REACTION [None]
  - INJECTION SITE PAIN [None]
  - INJECTION SITE ERYTHEMA [None]
  - INJECTION SITE DISCOMFORT [None]
